FAERS Safety Report 21032222 (Version 2)
Quarter: 2022Q3

REPORT INFORMATION
  Report Type: Spontaneous
  Country: IT (occurrence: IT)
  Receive Date: 20220701
  Receipt Date: 20220803
  Transmission Date: 20221027
  Serious: Yes (Hospitalization)
  Sender: FDA-Public Use
  Company Number: None

PATIENT
  Age: 72 Year
  Sex: Female
  Weight: 60 kg

DRUGS (3)
  1. GEMCITABINE [Suspect]
     Active Substance: GEMCITABINE
     Indication: Cholangiocarcinoma
     Dosage: UNIT DOSE : 1600 MG , FREQUENCY TIME : 1 CYCLICAL, LAST INFUSION WITH FULL DOSE 10/05, THEN RED BLOO
     Route: 042
     Dates: start: 20220322, end: 20220510
  2. CISPLATIN [Suspect]
     Active Substance: CISPLATIN
     Indication: Cholangiocarcinoma
     Dosage: UNIT DOSE : 40 MG , FREQUENCY TIME : 1 CYCLICAL, LAST INFUSION WITH FULL DOSE 10/05, THEN RED BLOOD
     Route: 042
     Dates: start: 20220322
  3. ATORVASTATIN [Concomitant]
     Active Substance: ATORVASTATIN
     Indication: Hypercholesterolaemia
     Dosage: UNIT DOSE : 20 MG
     Route: 048

REACTIONS (3)
  - Anaemia [Recovering/Resolving]
  - Thrombocytopenia [Recovering/Resolving]
  - Leukopenia [Recovering/Resolving]

NARRATIVE: CASE EVENT DATE: 20220523
